FAERS Safety Report 6843759-6 (Version None)
Quarter: 2010Q3

REPORT INFORMATION
  Report Type: 
  Country: None (occurrence: None)
  Receive Date: 20100715
  Receipt Date: 20100706
  Transmission Date: 20110219
  Serious: Yes (Other)
  Sender: FDA-Public Use
  Company Number: DE-ABBOTT-09P-062-0578243-00

PATIENT

DRUGS (6)
  1. DEPAKENE [Suspect]
     Indication: EPILEPSY
     Route: 064
  2. LAMOTRIGINE [Suspect]
     Indication: EPILEPSY
     Route: 064
  3. TOPIRAMATE [Suspect]
     Indication: EPILEPSY
     Route: 064
  4. CLOBAZAM [Suspect]
     Indication: EPILEPSY
     Route: 064
  5. LEVETIRACETAM [Concomitant]
     Indication: PRODUCT USED FOR UNKNOWN INDICATION
  6. CARBAMAZEPINE [Concomitant]
     Indication: PRODUCT USED FOR UNKNOWN INDICATION

REACTIONS (2)
  - CONGENITAL ANOMALY [None]
  - DRUG EXPOSURE DURING PREGNANCY [None]
